FAERS Safety Report 13409970 (Version 1)
Quarter: 2017Q2

REPORT INFORMATION
  Report Type: Spontaneous
  Country: US (occurrence: US)
  Receive Date: 20170406
  Receipt Date: 20170406
  Transmission Date: 20170830
  Serious: Yes (Other)
  Sender: FDA-Public Use
  Company Number: US-PFIZER INC-2017143244

PATIENT
  Age: 79 Year
  Sex: Female
  Weight: 79 kg

DRUGS (3)
  1. ROBINUL [Concomitant]
     Active Substance: GLYCOPYRROLATE
     Indication: PREMEDICATION
     Dosage: 0.3 MG, UNK
  2. FENTANYL CITRATE. [Suspect]
     Active Substance: FENTANYL CITRATE
     Indication: ANAESTHESIA
     Dosage: 200 UG, IN DIVIDED DOSES
  3. VALIUM [Concomitant]
     Active Substance: DIAZEPAM
     Indication: ANAESTHESIA
     Dosage: 5 MG, IN DIVIDED DOSES
     Route: 042

REACTIONS (1)
  - Generalised tonic-clonic seizure [Recovered/Resolved]
